FAERS Safety Report 18604093 (Version 2)
Quarter: 2021Q1

REPORT INFORMATION
  Report Type: Spontaneous
  Country: ZA (occurrence: ZA)
  Receive Date: 20201211
  Receipt Date: 20210112
  Transmission Date: 20210419
  Serious: Yes (Other)
  Sender: FDA-Public Use
  Company Number: ZA-DRREDDYS-SAF/SAF/20/0129833

PATIENT
  Age: 16 Year
  Sex: Male

DRUGS (10)
  1. RIVOTRIL [Concomitant]
     Active Substance: CLONAZEPAM
     Indication: EPILEPSY
     Route: 048
  2. URBANOL [Concomitant]
     Active Substance: CLOBAZAM
     Indication: EPILEPSY
     Route: 048
  3. REDILEV [Suspect]
     Active Substance: LEVETIRACETAM
     Indication: EPILEPSY
     Dates: start: 20201130, end: 20201204
  4. URBANOL [Concomitant]
     Active Substance: CLOBAZAM
     Indication: CEREBRAL PALSY
  5. EPILIM [Concomitant]
     Active Substance: VALPROATE SODIUM
     Indication: CEREBRAL PALSY
  6. RIVOTRIL [Concomitant]
     Active Substance: CLONAZEPAM
     Indication: CEREBRAL PALSY
  7. TOPALEX [Concomitant]
     Active Substance: TOPIRAMATE
     Indication: EPILEPSY
     Route: 048
  8. EPILIM [Concomitant]
     Active Substance: VALPROATE SODIUM
     Indication: EPILEPSY
     Route: 048
  9. REDILEV [Suspect]
     Active Substance: LEVETIRACETAM
     Indication: CEREBRAL PALSY
     Dates: start: 20201130, end: 20201204
  10. TOPALEX [Concomitant]
     Active Substance: TOPIRAMATE
     Indication: CEREBRAL PALSY

REACTIONS (1)
  - Seizure [Recovered/Resolved]

NARRATIVE: CASE EVENT DATE: 20201203
